FAERS Safety Report 17648380 (Version 3)
Quarter: 2020Q2

REPORT INFORMATION
  Report Type: Report from Study
  Country: CA (occurrence: CA)
  Receive Date: 20200408
  Receipt Date: 20200514
  Transmission Date: 20200713
  Serious: Yes (Other)
  Sender: FDA-Public Use
  Company Number: CA-JNJFOC-20200401294

PATIENT
  Age: 30 Year
  Sex: Male
  Weight: 85 kg

DRUGS (1)
  1. REMICADE [Suspect]
     Active Substance: INFLIXIMAB
     Indication: CROHN^S DISEASE
     Dosage: THE PATIENT^S REMICADE WAS POSTPONED DUE TO INTESTINAL RESECTION UNTIL 04-MAY-2020, RESTARTING REMIC
     Route: 042
     Dates: start: 20090715

REACTIONS (2)
  - Intestinal resection [Recovered/Resolved]
  - Pregnancy of partner [Not Recovered/Not Resolved]

NARRATIVE: CASE EVENT DATE: 2019
